FAERS Safety Report 23713947 (Version 2)
Quarter: 2024Q2

REPORT INFORMATION
  Report Type: Spontaneous
  Country: JP (occurrence: JP)
  Receive Date: 20240405
  Receipt Date: 20240419
  Transmission Date: 20240716
  Serious: Yes (Hospitalization)
  Sender: FDA-Public Use
  Company Number: JP-Merck Healthcare KGaA-2024016874

PATIENT
  Age: 75 Year
  Sex: Male

DRUGS (3)
  1. ERBITUX [Suspect]
     Active Substance: CETUXIMAB
     Indication: Gingival cancer
     Dosage: 400 MG/M2, OTHER
     Route: 041
  2. ERBITUX [Suspect]
     Active Substance: CETUXIMAB
     Dosage: 250 MG/M2, THE 2ND AND SUBSEQUENT ADMINISTRATIONS; WEEKLY.
     Route: 041
  3. PACLITAXEL [Suspect]
     Active Substance: PACLITAXEL
     Indication: Gingival cancer
     Dosage: UNK
     Route: 065

REACTIONS (1)
  - Pulmonary alveolar haemorrhage [Recovering/Resolving]
